FAERS Safety Report 10195873 (Version 1)
Quarter: 2014Q2

REPORT INFORMATION
  Report Type: Spontaneous
  Country: FR (occurrence: None)
  Receive Date: 20140522
  Receipt Date: 20140522
  Transmission Date: 20141212
  Serious: Yes (Death)
  Sender: FDA-Public Use
  Company Number: 2014134144

PATIENT
  Age: 86 Year
  Sex: Male

DRUGS (11)
  1. FRAGMINE (DALTEPARIN SODIUM) SOLUTION FOR INJECTION [Suspect]
     Dosage: 1DF 1X/DAY, SUBCUTANEOUS
     Route: 058
     Dates: start: 20140403, end: 20140407
  2. ALPRAZOLAM (ALPRAZOLAM) [Suspect]
     Route: 048
     Dates: end: 20140407
  3. KARDEGIC (ACETYLSALICYLATE LYSINE) [Suspect]
     Route: 048
     Dates: end: 20140407
  4. FLUOXETINE FLUOXETINE) [Concomitant]
     Route: 048
     Dates: end: 20140407
  5. TARDYFERON (FERROUS SULFATE) [Suspect]
     Route: 048
     Dates: end: 20140407
  6. SPECIAFOLDINE (FOLIC ACID) [Suspect]
     Route: 048
     Dates: end: 20140407
  7. SERESTA (OXAZEPAM) [Suspect]
     Route: 048
     Dates: end: 20140407
  8. EBIXA (MEMANTINE HYDROCHLORIDE) [Suspect]
     Route: 048
     Dates: end: 20140407
  9. IMOVANE (ZOPICLONE) [Suspect]
     Route: 048
     Dates: end: 20140407
  10. DOLIPRANE (PARACETAMOL) [Suspect]
     Route: 048
     Dates: end: 20140407
  11. FORLAX [Suspect]
     Route: 048
     Dates: end: 20140407

REACTIONS (3)
  - Haemorrhagic stroke [None]
  - Brain oedema [None]
  - Nervous system disorder [None]
